FAERS Safety Report 21822706 (Version 6)
Quarter: 2023Q1

REPORT INFORMATION
  Report Type: Report from Study
  Country: US (occurrence: US)
  Receive Date: 20230105
  Receipt Date: 20230302
  Transmission Date: 20230418
  Serious: No
  Sender: FDA-Public Use
  Company Number: US-002147023-NVSC2023US001777

PATIENT
  Age: 69 Year
  Sex: Female

DRUGS (3)
  1. KESIMPTA [Suspect]
     Active Substance: OFATUMUMAB
     Indication: Multiple sclerosis
     Dosage: 20 MG, QMO
     Route: 058
     Dates: start: 20230101
  2. KESIMPTA [Suspect]
     Active Substance: OFATUMUMAB
     Dosage: 20 MG, QMO
     Route: 058
  3. KESIMPTA [Suspect]
     Active Substance: OFATUMUMAB
     Dosage: 20 MG, QMO
     Route: 058
     Dates: start: 20230204

REACTIONS (27)
  - Tremor [Not Recovered/Not Resolved]
  - Influenza like illness [Recovering/Resolving]
  - Pain [Unknown]
  - Pyrexia [Unknown]
  - Illness [Unknown]
  - Oropharyngeal pain [Unknown]
  - Feeling abnormal [Unknown]
  - Memory impairment [Not Recovered/Not Resolved]
  - Abdominal discomfort [Recovering/Resolving]
  - Diarrhoea [Recovering/Resolving]
  - Abdominal pain [Recovering/Resolving]
  - Gait disturbance [Not Recovered/Not Resolved]
  - Balance disorder [Not Recovered/Not Resolved]
  - Insomnia [Unknown]
  - Hypoaesthesia [Not Recovered/Not Resolved]
  - Disturbance in attention [Unknown]
  - Depression [Not Recovered/Not Resolved]
  - Anxiety [Unknown]
  - Thinking abnormal [Not Recovered/Not Resolved]
  - Hand-eye coordination impaired [Unknown]
  - Condition aggravated [Unknown]
  - Asthenia [Unknown]
  - Dyspnoea [Unknown]
  - Cough [Unknown]
  - Nausea [Unknown]
  - Drug effect less than expected [Unknown]
  - Inappropriate schedule of product administration [Unknown]

NARRATIVE: CASE EVENT DATE: 20230101
